FAERS Safety Report 4829152-6 (Version None)
Quarter: 2005Q4

REPORT INFORMATION
  Report Type: 
  Country: None (occurrence: None)
  Receive Date: 20051116
  Receipt Date: 20051108
  Transmission Date: 20060501
  Serious: Yes (Other)
  Sender: FDA-Public Use
  Company Number: FR-BRISTOL-MYERS SQUIBB COMPANY-13173919

PATIENT
  Age: 50 Year
  Sex: Female

DRUGS (5)
  1. ABILIFY [Suspect]
     Indication: PSYCHOTIC DISORDER
     Route: 048
     Dates: start: 20050910, end: 20051003
  2. SOLIAN [Concomitant]
     Indication: PSYCHOTIC DISORDER
     Dates: end: 20050909
  3. STILNOX [Concomitant]
     Indication: INSOMNIA
  4. TEMESTA [Concomitant]
     Indication: ANXIETY
  5. ZOLOFT [Concomitant]
     Indication: DEPRESSION

REACTIONS (6)
  - ANOREXIA [None]
  - CONDITION AGGRAVATED [None]
  - HALLUCINATION, AUDITORY [None]
  - INSOMNIA [None]
  - NAUSEA [None]
  - WEIGHT DECREASED [None]
